FAERS Safety Report 11331327 (Version 1)
Quarter: 2015Q3

REPORT INFORMATION
  Report Type: Spontaneous
  Country: PL (occurrence: PL)
  Receive Date: 20150803
  Receipt Date: 20150803
  Transmission Date: 20151125
  Serious: Yes (Hospitalization, Other)
  Sender: FDA-Public Use
  Company Number: PHHY2015PL090165

PATIENT
  Age: 22 Year
  Sex: Female

DRUGS (6)
  1. METHYLPREDNISOLONE. [Suspect]
     Active Substance: METHYLPREDNISOLONE
     Dosage: 3 MG, QW
     Route: 051
  2. METHOTREXATE [Suspect]
     Active Substance: METHOTREXATE
     Dosage: 20 MG, UNK
     Route: 065
  3. METHYLPREDNISOLONE. [Suspect]
     Active Substance: METHYLPREDNISOLONE
     Indication: STILL^S DISEASE ADULT ONSET
     Dosage: 500 MG, QW
     Route: 042
  4. METHOTREXATE [Suspect]
     Active Substance: METHOTREXATE
     Indication: STILL^S DISEASE ADULT ONSET
     Dosage: 15 MG, UNK
     Route: 065
  5. INDOMETACIN [Suspect]
     Active Substance: INDOMETHACIN
     Indication: STILL^S DISEASE ADULT ONSET
     Dosage: 75 MG, QD
     Route: 065
  6. CICLOSPORIN [Suspect]
     Active Substance: CYCLOSPORINE
     Indication: STILL^S DISEASE ADULT ONSET

REACTIONS (16)
  - Thrombocytosis [Unknown]
  - Hodgkin^s disease [Unknown]
  - Lymphadenopathy mediastinal [Unknown]
  - Pyrexia [Unknown]
  - Oropharyngeal pain [Unknown]
  - Tachycardia [Unknown]
  - Asthenia [Unknown]
  - Arthralgia [Unknown]
  - Swelling [Unknown]
  - Pallor [Unknown]
  - Disease recurrence [Unknown]
  - Therapeutic response unexpected [Unknown]
  - Anaemia [Unknown]
  - Inflammation [Unknown]
  - Drug ineffective [Unknown]
  - Rash [Unknown]
